FAERS Safety Report 6687675-1 (Version None)
Quarter: 2010Q2

REPORT INFORMATION
  Report Type: 
  Country: None (occurrence: None)
  Receive Date: 20100415
  Receipt Date: 20100331
  Transmission Date: 20101027
  Serious: Yes (Other)
  Sender: FDA-Public Use
  Company Number: AUR-APL-2010-00927

PATIENT
  Sex: Male

DRUGS (8)
  1. BISOPROLOL FUMARATE [Suspect]
  2. BENDROFLUMETHIAZIDE [Suspect]
  3. COLOFAC [Suspect]
     Indication: IRRITABLE BOWEL SYNDROME
  4. DOXAZOSIN MESILATE [Suspect]
  5. EDRONAX [Suspect]
     Indication: DEPRESSION
     Dates: start: 20100223
  6. MOTILIUM [Suspect]
  7. NEXIUM [Suspect]
  8. RANITIDINE [Suspect]

REACTIONS (4)
  - DRUG INTERACTION [None]
  - FATIGUE [None]
  - SEDATION [None]
  - SOMNOLENCE [None]
